FAERS Safety Report 7750326-9 (Version None)
Quarter: 2011Q3

REPORT INFORMATION
  Report Type: 
  Country: None (occurrence: None)
  Receive Date: 20110914
  Receipt Date: 20110909
  Transmission Date: 20111222
  Serious: Yes (Hospitalization, Other)
  Sender: FDA-Public Use
  Company Number: US-PFIZER INC-2011137495

PATIENT
  Sex: Female
  Weight: 52 kg

DRUGS (1)
  1. DEPO-PROVERA [Suspect]
     Indication: CONTRACEPTION
     Dosage: ONCE
     Route: 030
     Dates: start: 20110101, end: 20110101

REACTIONS (19)
  - HAEMORRHAGE [None]
  - PAIN [None]
  - PULMONARY HAEMORRHAGE [None]
  - BLOOD VISCOSITY INCREASED [None]
  - INSOMNIA [None]
  - PULMONARY THROMBOSIS [None]
  - SINUS TACHYCARDIA [None]
  - PULMONARY FIBROSIS [None]
  - PLEURISY [None]
  - CONVULSION [None]
  - PULMONARY EMBOLISM [None]
  - CHEST PAIN [None]
  - ANAEMIA [None]
  - ASTHENIA [None]
  - PARANOIA [None]
  - DYSPNOEA [None]
  - MENORRHAGIA [None]
  - FALL [None]
  - ANXIETY [None]
